FAERS Safety Report 8434208-5 (Version None)
Quarter: 2012Q2

REPORT INFORMATION
  Report Type: 
  Country: None (occurrence: None)
  Receive Date: 20120613
  Receipt Date: 20120601
  Transmission Date: 20120825
  Serious: No
  Sender: FDA-Public Use
  Company Number: US-ASTRAZENECA-2012SE37006

PATIENT
  Age: 64 Year
  Sex: Female
  Weight: 71.7 kg

DRUGS (9)
  1. NEXIUM [Suspect]
     Indication: GASTROOESOPHAGEAL REFLUX DISEASE
     Route: 048
  2. NEXIUM [Suspect]
     Indication: BARRETT'S OESOPHAGUS
     Route: 048
  3. PRILOSEC [Suspect]
     Indication: BARRETT'S OESOPHAGUS
     Route: 048
  4. LORAZEPAM [Concomitant]
     Indication: ANXIETY
  5. ZOLOFT [Concomitant]
     Indication: SLEEP DISORDER
  6. ZOLOFT [Concomitant]
     Indication: ANXIETY
  7. SIMVASTATIN [Concomitant]
     Indication: BLOOD CHOLESTEROL ABNORMAL
  8. PRILOSEC [Suspect]
     Indication: GASTROOESOPHAGEAL REFLUX DISEASE
     Route: 048
  9. LORAZEPAM [Concomitant]
     Indication: SLEEP DISORDER

REACTIONS (3)
  - DRUG INEFFECTIVE [None]
  - OFF LABEL USE [None]
  - NAUSEA [None]
